FAERS Safety Report 8200107 (Version 2)
Quarter: 2013Q3

REPORT INFORMATION
  Report Type: Spontaneous
  Country: NO (occurrence: NO)
  Receive Date: 20111026
  Receipt Date: 20130805
  Transmission Date: 20140515
  Serious: Yes (Hospitalization, Disabling)
  Sender: FDA-Public Use
  Company Number: NO-SANOFI-AVENTIS-2011SA069492

PATIENT
  Age: 38 Year
  Sex: Female

DRUGS (1)
  1. KLEXANE [Suspect]
     Indication: FACTOR V LEIDEN MUTATION
     Route: 058
     Dates: start: 201007, end: 201104

REACTIONS (6)
  - Osteoporotic fracture [Recovered/Resolved with Sequelae]
  - Back pain [Recovered/Resolved with Sequelae]
  - Mobility decreased [Recovered/Resolved with Sequelae]
  - Posture abnormal [Recovered/Resolved]
  - Osteoporosis [Recovered/Resolved with Sequelae]
  - Exposure during pregnancy [Unknown]
